FAERS Safety Report 10753152 (Version 1)
Quarter: 2015Q1

REPORT INFORMATION
  Report Type: Spontaneous
  Country: US (occurrence: US)
  Receive Date: 20150130
  Receipt Date: 20150130
  Transmission Date: 20150721
  Serious: No
  Sender: FDA-Public Use
  Company Number: US-ENDO PHARMACEUTICALS INC.-ALBU20140001

PATIENT
  Age: 38 Year
  Sex: Male

DRUGS (2)
  1. ALBUTEROL SULFATE SYRUP 2MG/5ML [Suspect]
     Active Substance: ALBUTEROL SULFATE
     Indication: PRODUCT USED FOR UNKNOWN INDICATION
     Dosage: UNKNOWN
     Route: 048
     Dates: start: 201208, end: 201208
  2. ALBUTEROL SULFATE SYRUP 2MG/5ML [Suspect]
     Active Substance: ALBUTEROL SULFATE
     Dosage: UNKNOWN
     Route: 048
     Dates: start: 201408, end: 201408

REACTIONS (3)
  - Expired product administered [Unknown]
  - Dysgeusia [Unknown]
  - Paraesthesia [Unknown]

NARRATIVE: CASE EVENT DATE: 201408
